FAERS Safety Report 6356287-1 (Version None)
Quarter: 2009Q3

REPORT INFORMATION
  Report Type: 
  Country: None (occurrence: None)
  Receive Date: 20090915
  Receipt Date: 20090910
  Transmission Date: 20100115
  Serious: Yes (Other)
  Sender: FDA-Public Use
  Company Number: US-KINGPHARMUSA00001-K200901090

PATIENT
  Age: 15 Year
  Sex: Female
  Weight: 53.3 kg

DRUGS (2)
  1. TAPAZOLE [Suspect]
     Indication: HYPERTHYROIDISM
     Dosage: 10 MG, BID
     Route: 048
     Dates: start: 20090825, end: 20090903
  2. TAPAZOLE [Suspect]
     Dosage: 10 MG, QD
     Route: 048
     Dates: start: 20090901

REACTIONS (4)
  - BENIGN INTRACRANIAL HYPERTENSION [None]
  - EYE IRRITATION [None]
  - OCULAR HYPERAEMIA [None]
  - PUPILS UNEQUAL [None]
